FAERS Safety Report 7845490-7 (Version None)
Quarter: 2011Q4

REPORT INFORMATION
  Report Type: 
  Country: None (occurrence: None)
  Receive Date: 20111018
  Receipt Date: 20111005
  Transmission Date: 20120403
  Serious: Yes (Hospitalization)
  Sender: FDA-Public Use
  Company Number: 2011SP023623

PATIENT
  Age: 77 Year
  Sex: Male
  Weight: 81.6 kg

DRUGS (5)
  1. SIMVASTATIN [Concomitant]
  2. DEXAMETHASONE [Suspect]
     Indication: MULTIPLE MYELOMA
     Dosage: 40 MG;PO
     Route: 048
     Dates: start: 20110329, end: 20110408
  3. VELCADE [Suspect]
     Indication: MULTIPLE MYELOMA
     Dosage: 2.6 MG;BIW;IV
     Route: 042
     Dates: start: 20110329, end: 20110405
  4. GABAPENTIN [Concomitant]
  5. TRAMADOL HYDROCHLORIDE [Concomitant]

REACTIONS (5)
  - HAEMOGLOBIN DECREASED [None]
  - RIB FRACTURE [None]
  - FEBRILE NEUTROPENIA [None]
  - CONSTIPATION [None]
  - PLATELET COUNT DECREASED [None]
